FAERS Safety Report 12771087 (Version 1)
Quarter: 2016Q3

REPORT INFORMATION
  Report Type: Spontaneous
  Country: FR (occurrence: FR)
  Receive Date: 20160922
  Receipt Date: 20160922
  Transmission Date: 20161109
  Serious: Yes (Death, Hospitalization, Other)
  Sender: FDA-Public Use
  Company Number: FR-ELI_LILLY_AND_COMPANY-FR201609006839

PATIENT
  Sex: Male

DRUGS (4)
  1. CARBOPLATIN. [Suspect]
     Active Substance: CARBOPLATIN
     Indication: LUNG NEOPLASM MALIGNANT
     Dosage: UNK UNK, CYCLICAL
     Route: 065
     Dates: start: 20160628
  2. SPECIAFOLDINE [Concomitant]
     Active Substance: FOLIC ACID
  3. ALIMTA [Suspect]
     Active Substance: PEMETREXED DISODIUM
     Indication: LUNG NEOPLASM MALIGNANT
     Dosage: UNK UNK, CYCLICAL
     Route: 042
     Dates: start: 20160426
  4. CISPLATIN. [Suspect]
     Active Substance: CISPLATIN
     Indication: LUNG NEOPLASM MALIGNANT
     Dosage: UNK UNK, CYCLICAL
     Route: 065
     Dates: start: 20160426

REACTIONS (11)
  - Thrombocytopenia [Unknown]
  - Enterocolitis [Unknown]
  - Haemoptysis [Unknown]
  - Febrile neutropenia [Unknown]
  - Sepsis [Fatal]
  - Multiple organ dysfunction syndrome [Unknown]
  - General physical health deterioration [Unknown]
  - Off label use [Unknown]
  - Nephropathy toxic [Unknown]
  - Diarrhoea [Unknown]
  - Haemoglobin decreased [Unknown]

NARRATIVE: CASE EVENT DATE: 20160628
